FAERS Safety Report 6499209-5 (Version None)
Quarter: 2009Q4

REPORT INFORMATION
  Report Type: 
  Country: None (occurrence: None)
  Receive Date: 20091127
  Receipt Date: 20081016
  Transmission Date: 20100525
  Serious: Yes (Disabling)
  Sender: FDA-Public Use
  Company Number: WAES 0805USA00913

PATIENT
  Age: 57 Year
  Sex: Female
  Weight: 68.0396 kg

DRUGS (2)
  1. FOSAMAX [Suspect]
     Indication: OSTEOPOROSIS
     Dosage: 10 MG/PO;70 MG/PO
     Route: 048
     Dates: start: 20001001, end: 20001201
  2. FOSAMAX [Suspect]
     Indication: OSTEOPOROSIS
     Dosage: 10 MG/PO;70 MG/PO
     Route: 048
     Dates: start: 20001201, end: 20061201

REACTIONS (29)
  - ANXIETY [None]
  - ARTHRALGIA [None]
  - BACK DISORDER [None]
  - BACK PAIN [None]
  - BENIGN BREAST NEOPLASM [None]
  - BRUXISM [None]
  - BURSITIS [None]
  - CHEST PAIN [None]
  - DEPRESSION [None]
  - DRUG INEFFECTIVE [None]
  - DRUG INTOLERANCE [None]
  - FATIGUE [None]
  - FOOD ALLERGY [None]
  - GINGIVAL PAIN [None]
  - HEADACHE [None]
  - HYPERSENSITIVITY [None]
  - INCREASED TENDENCY TO BRUISE [None]
  - IRRITABLE BOWEL SYNDROME [None]
  - MEMORY IMPAIRMENT [None]
  - MUSCULAR WEAKNESS [None]
  - MYALGIA [None]
  - NAUSEA [None]
  - ORAL INFECTION [None]
  - OSTEONECROSIS [None]
  - ROTATOR CUFF SYNDROME [None]
  - STRESS [None]
  - SUBCUTANEOUS NODULE [None]
  - TENDONITIS [None]
  - TOOTHACHE [None]
